FAERS Safety Report 13801888 (Version 1)
Quarter: 2017Q3

REPORT INFORMATION
  Report Type: Report from Study
  Country: MX (occurrence: MX)
  Receive Date: 20170727
  Receipt Date: 20170727
  Transmission Date: 20171127
  Serious: Yes (Hospitalization)
  Sender: FDA-Public Use
  Company Number: MX-ELI_LILLY_AND_COMPANY-MX201707009930

PATIENT
  Age: 59 Year
  Sex: Female

DRUGS (1)
  1. CETUXIMAB. [Suspect]
     Active Substance: CETUXIMAB
     Indication: COLORECTAL CANCER
     Dosage: 400 MG, WEEKLY (1/W)
     Route: 042
     Dates: start: 20170608

REACTIONS (4)
  - Decreased appetite [Unknown]
  - Nausea [Unknown]
  - Abdominal pain upper [Unknown]
  - White blood cell count decreased [Unknown]

NARRATIVE: CASE EVENT DATE: 201707
